FAERS Safety Report 19693587 (Version 1)
Quarter: 2021Q3

REPORT INFORMATION
  Report Type: Spontaneous
  Country: US (occurrence: US)
  Receive Date: 20210812
  Receipt Date: 20210812
  Transmission Date: 20211014
  Serious: Yes (Hospitalization)
  Sender: FDA-Public Use
  Company Number: US-SA-2021SA263595

PATIENT
  Sex: Female

DRUGS (2)
  1. AUBAGIO [Suspect]
     Active Substance: TERIFLUNOMIDE
     Indication: CARPAL TUNNEL SYNDROME
     Route: 048
  2. PARACETAMOL [Suspect]
     Active Substance: ACETAMINOPHEN
     Indication: COVID-19

REACTIONS (4)
  - Alopecia [Unknown]
  - Liver disorder [Unknown]
  - Product use in unapproved indication [Unknown]
  - COVID-19 [Unknown]
